FAERS Safety Report 7922317-6 (Version None)
Quarter: 2011Q4

REPORT INFORMATION
  Report Type: 
  Country: None (occurrence: None)
  Receive Date: 20111117
  Receipt Date: 20111108
  Transmission Date: 20120403
  Serious: Yes (Hospitalization)
  Sender: FDA-Public Use
  Company Number: US-ASTRAZENECA-2011SE52753

PATIENT
  Age: 60 Year
  Sex: Female

DRUGS (8)
  1. SEROQUEL [Suspect]
     Indication: BIPOLAR DISORDER
     Route: 048
     Dates: start: 20110301
  2. SEROQUEL [Suspect]
     Dosage: 200 MG TWO AND 1/2 AT BEDTIME
     Route: 048
  3. CELEXA [Concomitant]
     Dosage: 20 MG, TWO EACH AM AND HS
  4. AMBIEN [Concomitant]
  5. SEROQUEL [Suspect]
     Route: 048
  6. CELEXA [Concomitant]
  7. ATIVAN [Concomitant]
     Dosage: 2 MG, ONE FOUR TIMES DAILY AS NEEDED
  8. SEROQUEL [Suspect]
     Route: 048
     Dates: start: 20110303

REACTIONS (12)
  - MENTAL DISORDER [None]
  - AGITATION [None]
  - DELUSION [None]
  - DRUG DOSE OMISSION [None]
  - DEPRESSION [None]
  - CRYING [None]
  - ANXIETY [None]
  - PSYCHOTIC DISORDER [None]
  - INSOMNIA [None]
  - TACHYPHRENIA [None]
  - DISTRACTIBILITY [None]
  - AFFECTIVE DISORDER [None]
